FAERS Safety Report 4371516-1 (Version None)
Quarter: 2004Q2

REPORT INFORMATION
  Report Type: 
  Country: None (occurrence: None)
  Receive Date: 20040602
  Receipt Date: 20040524
  Transmission Date: 20050107
  Serious: Yes (Hospitalization)
  Sender: FDA-Public Use
  Company Number: 2004UW06938

PATIENT
  Age: 64 Year
  Sex: Male
  Weight: 88.905 kg

DRUGS (5)
  1. CRESTOR [Suspect]
     Indication: HYPERLIPIDAEMIA
     Dosage: 10 MG ONCE PO
     Route: 048
     Dates: start: 20040327, end: 20040328
  2. LORTAB [Concomitant]
  3. CELEBREX [Concomitant]
  4. CALCIUM WITH VITAMIN D [Concomitant]
  5. ULTRACET [Concomitant]

REACTIONS (2)
  - BRAIN SCAN ABNORMAL [None]
  - CONVULSION [None]
